FAERS Safety Report 19239678 (Version 1)
Quarter: 2021Q2

REPORT INFORMATION
  Report Type: Report from Study
  Country: None (occurrence: CH)
  Receive Date: 20210511
  Receipt Date: 20210511
  Transmission Date: 20210717
  Serious: Yes (Other)
  Sender: FDA-Public Use
  Company Number: CH-ABBVIE-19K-151-2879297-00

PATIENT
  Age: 75 Year
  Sex: Female

DRUGS (4)
  1. DUODOPA [Suspect]
     Active Substance: CARBIDOPA\LEVODOPA
     Indication: PARKINSON^S DISEASE
     Route: 050
     Dates: start: 20161003, end: 20181119
  2. DUODOPA [Suspect]
     Active Substance: CARBIDOPA\LEVODOPA
     Dosage: MD: 6 ML, CR DAY: 2.9 ML/H, CR NIGHT: 0 ML/H, ED : 2 ML
     Route: 050
     Dates: start: 20181119, end: 20181127
  3. SILVER NITRATE. [Concomitant]
     Active Substance: SILVER NITRATE
     Indication: EXCESSIVE GRANULATION TISSUE
     Dosage: AS REQUIRED
     Route: 061
  4. DUODOPA [Suspect]
     Active Substance: CARBIDOPA\LEVODOPA
     Dosage: MD: 6 ML, CR DAY: 3 ML/H, CR NIGHT: 0 ML/H, EXTRA DOSE: 2 ML
     Route: 050
     Dates: start: 20181127

REACTIONS (14)
  - Stoma site irritation [Recovered/Resolved]
  - Extremity contracture [Not Recovered/Not Resolved]
  - Dementia [Unknown]
  - Stoma site hypergranulation [Recovered/Resolved]
  - Unresponsive to stimuli [Not Recovered/Not Resolved]
  - Off label use [Recovered/Resolved]
  - Language disorder [Not Recovered/Not Resolved]
  - Anal incontinence [Not Recovered/Not Resolved]
  - Stoma site erythema [Recovered/Resolved]
  - Enteral nutrition [Not Recovered/Not Resolved]
  - Mobility decreased [Not Recovered/Not Resolved]
  - Urinary incontinence [Not Recovered/Not Resolved]
  - Dysphagia [Unknown]
  - Hallucination [Not Recovered/Not Resolved]

NARRATIVE: CASE EVENT DATE: 2016
